FAERS Safety Report 4364082-8 (Version None)
Quarter: 2004Q2

REPORT INFORMATION
  Report Type: 
  Country: None (occurrence: None)
  Receive Date: 20040519
  Receipt Date: 20040507
  Transmission Date: 20050107
  Serious: Yes (Hospitalization)
  Sender: FDA-Public Use
  Company Number: GB-JNJFOC-20040501252

PATIENT
  Age: 47 Year
  Sex: Male

DRUGS (7)
  1. REMICADE [Suspect]
     Indication: RHEUMATOID ARTHRITIS
     Dosage: 210 MG, INTRAVENOUS
     Route: 042
     Dates: start: 20030612, end: 20030925
  2. METHOTREXATE [Concomitant]
  3. DICLOFENAC SODIUM [Concomitant]
  4. STEROIDS (CORTICOSTEROID NOS) [Concomitant]
  5. FOLIC ACID [Concomitant]
  6. CALCIUM/VITAMIN D (CALCIUM WITH VITAMIN D) [Concomitant]
  7. TRAMADOL HCL [Concomitant]

REACTIONS (1)
  - NECROTISING FASCIITIS [None]
